FAERS Safety Report 6161415-7 (Version None)
Quarter: 2009Q2

REPORT INFORMATION
  Report Type: 
  Country: None (occurrence: None)
  Receive Date: 20090417
  Receipt Date: 20090417
  Transmission Date: 20091009
  Serious: No
  Sender: FDA-Public Use
  Company Number: None

PATIENT
  Sex: Female
  Weight: 88.4514 kg

DRUGS (2)
  1. FOSAMAX [Suspect]
     Indication: OSTEOPOROSIS
     Dosage: 1 TABLET ONCE A WK  (DURATION: 2 1/2 MOS)
  2. DIGOXIN [Concomitant]

REACTIONS (4)
  - EAR PAIN [None]
  - FATIGUE [None]
  - PAIN IN JAW [None]
  - VOMITING [None]
